FAERS Safety Report 5676801-9 (Version None)
Quarter: 2008Q1

REPORT INFORMATION
  Report Type: 
  Country: None (occurrence: None)
  Receive Date: 20080318
  Receipt Date: 20080311
  Transmission Date: 20080703
  Serious: Yes (Life-Threatening)
  Sender: FDA-Public Use
  Company Number: 2008S1000048

PATIENT
  Age: 4 Day
  Sex: Female
  Weight: 0.76 kg

DRUGS (10)
  1. NITRIC OXIDE [Suspect]
     Indication: LUNG DISORDER
     Dosage: 5 PPM CONT INH
     Route: 055
     Dates: start: 20080216, end: 20080308
  2. NITRIC OXIDE [Suspect]
     Indication: PROPHYLAXIS
     Dosage: 5 PPM CONT INH
     Route: 055
     Dates: start: 20080216, end: 20080308
  3. CEFTAZIDIME SODIUM [Concomitant]
  4. VANCOMYCIN [Concomitant]
  5. PROPOFOL [Concomitant]
  6. PHENOBARBITAL TAB [Concomitant]
  7. FENTANYL [Concomitant]
  8. NORCURON [Concomitant]
  9. ATROPINE [Concomitant]
  10. NYSTATIN [Concomitant]

REACTIONS (5)
  - LEFT ATRIAL DILATATION [None]
  - NEONATAL ANURIA [None]
  - NO THERAPEUTIC RESPONSE [None]
  - PATENT DUCTUS ARTERIOSUS [None]
  - RESPIRATORY DISORDER NEONATAL [None]
